FAERS Safety Report 15968925 (Version 1)
Quarter: 2019Q1

REPORT INFORMATION
  Report Type: Spontaneous
  Country: US (occurrence: US)
  Receive Date: 20190215
  Receipt Date: 20190215
  Transmission Date: 20190418
  Serious: No
  Sender: FDA-Public Use
  Company Number: US-OTSUKA-2018_018983

PATIENT

DRUGS (2)
  1. BUSILVEX [Suspect]
     Active Substance: BUSULFAN
     Indication: PRODUCT USED FOR UNKNOWN INDICATION
     Dosage: 38 MG, UNK
     Route: 065
  2. BUSILVEX [Suspect]
     Active Substance: BUSULFAN
     Dosage: 38 MG, UNK
     Route: 065

REACTIONS (4)
  - Adverse event [Unknown]
  - Incorrect product administration duration [Unknown]
  - Product use issue [Unknown]
  - Product deposit [Unknown]
